FAERS Safety Report 5110523-8 (Version None)
Quarter: 2006Q3

REPORT INFORMATION
  Report Type: 
  Country: None (occurrence: None)
  Receive Date: 20060921
  Receipt Date: 20060912
  Transmission Date: 20061208
  Serious: Yes (Other)
  Sender: FDA-Public Use
  Company Number: PT-BOEHRINGER INGELHEIM PHARMACEUTICALS, INC.-2006-BP-10998YA

PATIENT
  Sex: Male
  Weight: 73 kg

DRUGS (1)
  1. TAMSULOSIN ORODISPERSABLE CR [Suspect]
     Route: 048
     Dates: start: 20060601, end: 20060630

REACTIONS (5)
  - DRUG INEFFECTIVE [None]
  - DYSURIA [None]
  - MICTURITION URGENCY [None]
  - PHARMACEUTICAL PRODUCT COMPLAINT [None]
  - URINARY RETENTION [None]
